FAERS Safety Report 5444444-8 (Version None)
Quarter: 2007Q3

REPORT INFORMATION
  Report Type: 
  Country: None (occurrence: None)
  Receive Date: 20070824
  Receipt Date: 20070816
  Transmission Date: 20080115
  Serious: Yes (Other)
  Sender: FDA-Public Use
  Company Number: CHPA2007US08768

PATIENT
  Age: 68 Year
  Sex: Female

DRUGS (4)
  1. BENEFIBER W/ WHEAT DEXTRIN (NCH)(WHEAT DEXTRIN) POWDER [Suspect]
     Indication: DIVERTICULITIS
     Dosage: 2 TSP, QD, ORAL; 1 TSP, TID, ORAL
     Route: 048
     Dates: start: 20070301
  2. BENEFIBER W/ WHEAT DEXTRIN (NCH)(WHEAT DEXTRIN) POWDER [Suspect]
     Indication: DIVERTICULITIS
     Dosage: 2 TSP, QD, ORAL; 1 TSP, TID, ORAL
     Route: 048
     Dates: start: 20070701
  3. LISINOPRIL [Concomitant]
  4. CRESTOR [Concomitant]

REACTIONS (4)
  - INCORRECT DOSE ADMINISTERED [None]
  - LOSS OF CONSCIOUSNESS [None]
  - NAUSEA [None]
  - VOMITING [None]
